FAERS Safety Report 23736927 (Version 1)
Quarter: 2024Q2

REPORT INFORMATION
  Report Type: Spontaneous
  Country: US (occurrence: None)
  Receive Date: 20240411
  Receipt Date: 20240411
  Transmission Date: 20240716
  Serious: Yes (Hospitalization)
  Sender: FDA-Public Use
  Company Number: None

PATIENT
  Sex: Female

DRUGS (1)
  1. SPRAVATO [Suspect]
     Active Substance: ESKETAMINE
     Indication: Attention deficit hyperactivity disorder
     Dosage: FREQUENCY : WEEKLY;?
     Route: 045
     Dates: start: 20230322

REACTIONS (2)
  - Hospitalisation [None]
  - Therapy interrupted [None]
